FAERS Safety Report 5504390-8 (Version None)
Quarter: 2007Q4

REPORT INFORMATION
  Report Type: 
  Country: None (occurrence: None)
  Receive Date: 20071101
  Receipt Date: 20071024
  Transmission Date: 20080405
  Serious: Yes (Hospitalization)
  Sender: FDA-Public Use
  Company Number: US-ELI_LILLY_AND_COMPANY-US200710006033

PATIENT
  Sex: Male
  Weight: 106.58 kg

DRUGS (3)
  1. BYETTA [Suspect]
     Indication: TYPE 2 DIABETES MELLITUS
     Dosage: 5 UG, 2/D
     Route: 058
     Dates: start: 20070701
  2. GLIMEPIRIDE [Concomitant]
     Indication: TYPE 2 DIABETES MELLITUS
     Dosage: 4 MG, DAILY (1/D)
     Route: 048
  3. DIURETICS [Concomitant]
     Indication: OEDEMA PERIPHERAL
     Dosage: UNK, UNKNOWN

REACTIONS (7)
  - BLOOD GLUCOSE DECREASED [None]
  - BLOOD POTASSIUM DECREASED [None]
  - BLOOD SODIUM DECREASED [None]
  - DYSPNOEA [None]
  - EARLY SATIETY [None]
  - OEDEMA PERIPHERAL [None]
  - WEIGHT DECREASED [None]
